FAERS Safety Report 7160540-1 (Version None)
Quarter: 2010Q4

REPORT INFORMATION
  Report Type: 
  Country: None (occurrence: None)
  Receive Date: 20101214
  Receipt Date: 20100202
  Transmission Date: 20110411
  Serious: No
  Sender: FDA-Public Use
  Company Number: US-AMGEN-TCS376668

PATIENT

DRUGS (9)
  1. ENBREL [Suspect]
     Indication: RHEUMATOID ARTHRITIS
     Dosage: 50 MG, QWK
     Route: 058
     Dates: start: 20091012
  2. METHOTREXATE [Concomitant]
     Dosage: UNK UNK, UNK
  3. RIFAMPICIN [Concomitant]
     Dosage: UNK UNK, UNK
     Dates: start: 20090701
  4. LEVOTHYROXINE SODIUM [Concomitant]
     Dosage: 200 A?G, QD
  5. TRAMADOL HYDROCHLORIDE [Concomitant]
  6. AMITRIPTYLINE [Concomitant]
  7. GABAPENTIN [Concomitant]
  8. LEVOTHYROXINE SODIUM [Concomitant]
  9. IRON [Concomitant]

REACTIONS (1)
  - BLISTER [None]
